FAERS Safety Report 24964684 (Version 2)
Quarter: 2025Q1

REPORT INFORMATION
  Report Type: Spontaneous
  Country: US (occurrence: US)
  Receive Date: 20250213
  Receipt Date: 20250225
  Transmission Date: 20250408
  Serious: Yes (Other)
  Sender: TEVA
  Company Number: US-TEVA-VS-3295110

PATIENT
  Age: 65 Year
  Sex: Female

DRUGS (4)
  1. CARBOPLATIN [Interacting]
     Active Substance: CARBOPLATIN
     Indication: Endometrial cancer stage IV
     Route: 065
  2. DUPILUMAB [Concomitant]
     Active Substance: DUPILUMAB
     Indication: Asthma
     Route: 065
  3. PEMBROLIZUMAB [Interacting]
     Active Substance: PEMBROLIZUMAB
     Indication: Endometrial cancer stage IV
     Route: 065
  4. PACLITAXEL [Concomitant]
     Active Substance: PACLITAXEL
     Indication: Endometrial cancer stage IV
     Route: 065

REACTIONS (2)
  - Toxic epidermal necrolysis [Recovering/Resolving]
  - Drug interaction [Unknown]
